FAERS Safety Report 5669451-1 (Version None)
Quarter: 2008Q1

REPORT INFORMATION
  Report Type: 
  Country: None (occurrence: None)
  Receive Date: 20080317
  Receipt Date: 20080314
  Transmission Date: 20080703
  Serious: Yes (Hospitalization)
  Sender: FDA-Public Use
  Company Number: B0512046A

PATIENT
  Age: 73 Year
  Sex: Male

DRUGS (4)
  1. VALACYCLOVIR [Suspect]
     Dosage: 1G THREE TIMES PER DAY
     Route: 048
  2. NSAID [Suspect]
     Route: 065
  3. ANGIOTENSIN II ANTAGONIST [Suspect]
     Route: 065
  4. BETA-BLOCKER [Concomitant]
     Route: 065

REACTIONS (7)
  - ANAEMIA [None]
  - ANURIA [None]
  - BLOOD CREATININE INCREASED [None]
  - DRUG TOXICITY [None]
  - OEDEMA [None]
  - RENAL FAILURE ACUTE [None]
  - RENAL IMPAIRMENT [None]
